FAERS Safety Report 10352015 (Version 1)
Quarter: 2014Q3

REPORT INFORMATION
  Report Type: Spontaneous
  Country: US (occurrence: US)
  Receive Date: 20140730
  Receipt Date: 20140730
  Transmission Date: 20150326
  Serious: No
  Sender: FDA-Public Use
  Company Number: US-ABBVIE-14P-163-1245601-00

PATIENT
  Age: 60 Year
  Sex: Female
  Weight: 65.38 kg

DRUGS (3)
  1. LIOTHYROINE [Concomitant]
     Indication: PRODUCT USED FOR UNKNOWN INDICATION
  2. TERBENIFINE [Concomitant]
     Indication: PRODUCT USED FOR UNKNOWN INDICATION
  3. SYNTHROID [Suspect]
     Active Substance: LEVOTHYROXINE SODIUM
     Indication: HYPOTHYROIDISM
     Route: 048
     Dates: start: 201403

REACTIONS (2)
  - Drug hypersensitivity [Unknown]
  - Rash [Recovering/Resolving]

NARRATIVE: CASE EVENT DATE: 201405
